FAERS Safety Report 7083555-0 (Version None)
Quarter: 2010Q4

REPORT INFORMATION
  Report Type: 
  Country: None (occurrence: None)
  Receive Date: 20101104
  Receipt Date: 20101025
  Transmission Date: 20110411
  Serious: Yes (Other)
  Sender: FDA-Public Use
  Company Number: US-ROCHE-737109

PATIENT
  Age: 42 Year
  Sex: Male

DRUGS (2)
  1. RIBAVARIN [Suspect]
     Indication: HEPATITIS C
     Dosage: FOR 48 WEEKS.
     Route: 048
  2. PEG-INTRON [Suspect]
     Indication: HEPATITIS C
     Dosage: DRUG NAME: PEG- INTERFERON.
     Route: 058

REACTIONS (4)
  - ANXIETY DISORDER [None]
  - FATIGUE [None]
  - POOR QUALITY SLEEP [None]
  - SEXUAL DYSFUNCTION [None]
